FAERS Safety Report 14586360 (Version 1)
Quarter: 2018Q1

REPORT INFORMATION
  Report Type: Spontaneous
  Country: US (occurrence: US)
  Receive Date: 20180301
  Receipt Date: 20180301
  Transmission Date: 20180509
  Serious: No
  Sender: FDA-Public Use
  Company Number: US-BAYER-2018-035810

PATIENT
  Sex: Female
  Weight: 39 kg

DRUGS (2)
  1. CLARITIN [Suspect]
     Active Substance: LORATADINE
     Indication: HEADACHE
     Dosage: 1 DF, BID
     Route: 048
     Dates: end: 20180220
  2. CLARITIN [Suspect]
     Active Substance: LORATADINE
     Indication: SINUS DISORDER

REACTIONS (1)
  - Product use in unapproved indication [Unknown]
